FAERS Safety Report 14221702 (Version 1)
Quarter: 2017Q4

REPORT INFORMATION
  Report Type: Spontaneous
  Country: FR (occurrence: FR)
  Receive Date: 20171123
  Receipt Date: 20171123
  Transmission Date: 20180321
  Serious: Yes (Other)
  Sender: FDA-Public Use
  Company Number: FR-MERCK KGAA-2034982

PATIENT
  Age: 72 Year
  Sex: Female

DRUGS (1)
  1. NOVOTHYROX [Suspect]
     Active Substance: LEVOTHYROXINE SODIUM
     Indication: POST PROCEDURAL HYPOTHYROIDISM
     Dates: start: 201705

REACTIONS (15)
  - Blood pressure fluctuation [Recovering/Resolving]
  - Apathy [None]
  - Dysgeusia [Recovering/Resolving]
  - Depressed mood [None]
  - Amnesia [Recovering/Resolving]
  - Balance disorder [Recovering/Resolving]
  - Vertigo [Recovering/Resolving]
  - Muscle spasms [Recovering/Resolving]
  - Visual impairment [Recovering/Resolving]
  - Poor quality sleep [Recovering/Resolving]
  - Palpitations [Recovering/Resolving]
  - Arrhythmia [None]
  - Fatigue [Recovering/Resolving]
  - Psychiatric symptom [Recovering/Resolving]
  - Headache [Recovering/Resolving]

NARRATIVE: CASE EVENT DATE: 2017
